FAERS Safety Report 19957175 (Version 1)
Quarter: 2021Q4

REPORT INFORMATION
  Report Type: Report from Study
  Country: MX (occurrence: MX)
  Receive Date: 20211014
  Receipt Date: 20211014
  Transmission Date: 20220303
  Serious: Yes (Other)
  Sender: FDA-Public Use
  Company Number: MX-NOVARTISPH-NVSC2021MX231555

PATIENT
  Sex: Male
  Weight: 60 kg

DRUGS (1)
  1. METFORMIN HYDROCHLORIDE\VILDAGLIPTIN [Suspect]
     Active Substance: METFORMIN HYDROCHLORIDE\VILDAGLIPTIN
     Indication: Blood glucose abnormal
     Dosage: 1 DF, Q12H (APPROXIMATELY 1 YEAR AGO)
     Route: 048

REACTIONS (2)
  - Drug dependence [Unknown]
  - Blood glucose increased [Unknown]
